FAERS Safety Report 12414985 (Version 1)
Quarter: 2016Q2

REPORT INFORMATION
  Report Type: Spontaneous
  Country: FR (occurrence: FR)
  Receive Date: 20160530
  Receipt Date: 20160530
  Transmission Date: 20160815
  Serious: Yes (Hospitalization)
  Sender: FDA-Public Use
  Company Number: FR-ROCHE-1763992

PATIENT
  Age: 37 Year
  Sex: Male

DRUGS (5)
  1. THERALENE (FRANCE) [Suspect]
     Active Substance: TRIMEPRAZINE
     Indication: PSYCHOTIC DISORDER
     Route: 048
     Dates: start: 20160317, end: 20160409
  2. VALIUM [Suspect]
     Active Substance: DIAZEPAM
     Indication: PSYCHOTIC DISORDER
     Dosage: 10 DROPS/MORNING, 20 DROPS/NOON, 30 DROPS/EVENING
     Route: 048
     Dates: start: 20160317, end: 20160409
  3. ABILIFY [Suspect]
     Active Substance: ARIPIPRAZOLE
     Indication: PSYCHOTIC DISORDER
     Route: 048
     Dates: start: 20160317, end: 20160409
  4. RISPERDAL [Suspect]
     Active Substance: RISPERIDONE
     Indication: PSYCHOTIC DISORDER
     Dosage: 2MG/MORNING, 6MG/EVENING
     Route: 048
     Dates: start: 20160317, end: 20160409
  5. LOXAPAC [Suspect]
     Active Substance: LOXAPINE SUCCINATE
     Indication: PSYCHOTIC DISORDER
     Route: 048
     Dates: start: 20160317, end: 20160409

REACTIONS (6)
  - Apathy [Recovering/Resolving]
  - Dysphagia [Recovering/Resolving]
  - Hyperhidrosis [Recovering/Resolving]
  - Disturbance in attention [Recovering/Resolving]
  - Catatonia [Recovering/Resolving]
  - Extrapyramidal disorder [Recovering/Resolving]

NARRATIVE: CASE EVENT DATE: 20160409
